FAERS Safety Report 4499647-6 (Version None)
Quarter: 2004Q4

REPORT INFORMATION
  Report Type: 
  Country: None (occurrence: None)
  Receive Date: 20041108
  Receipt Date: 20040726
  Transmission Date: 20050328
  Serious: Yes (Other)
  Sender: FDA-Public Use
  Company Number: 2004043570

PATIENT
  Age: 62 Year
  Sex: Female
  Weight: 68 kg

DRUGS (2)
  1. ZITHROMAX [Suspect]
     Indication: PHARYNGITIS
     Dosage: 500 MG (1 D), ORAL
     Route: 048
     Dates: start: 20040114, end: 20040116
  2. PARACETAMOL (PARACETAMOL) [Concomitant]

REACTIONS (2)
  - ANOSMIA [None]
  - DYSGEUSIA [None]
